FAERS Safety Report 8014225-X (Version None)
Quarter: 2011Q4

REPORT INFORMATION
  Report Type: 
  Country: None (occurrence: None)
  Receive Date: 20111229
  Receipt Date: 20111020
  Transmission Date: 20120403
  Serious: Yes (Other)
  Sender: FDA-Public Use
  Company Number: US-GLAXOSMITHKLINE-A0950527A

PATIENT
  Sex: Male

DRUGS (1)
  1. VOTRIENT [Suspect]
     Indication: THYROID CANCER
     Dosage: 800MG PER DAY
     Route: 065
     Dates: start: 20111012

REACTIONS (8)
  - FATIGUE [None]
  - APHONIA [None]
  - ARTHRALGIA [None]
  - INFLUENZA [None]
  - DECREASED APPETITE [None]
  - DIARRHOEA [None]
  - NUCLEAR MAGNETIC RESONANCE IMAGING ABNORMAL [None]
  - LIVER FUNCTION TEST ABNORMAL [None]
